FAERS Safety Report 16619134 (Version 6)
Quarter: 2019Q4

REPORT INFORMATION
  Report Type: Report from Study
  Country: IT (occurrence: IT)
  Receive Date: 20190723
  Receipt Date: 20191003
  Transmission Date: 20200122
  Serious: Yes (Death)
  Sender: FDA-Public Use
  Company Number: PHHO2019IT007273

PATIENT
  Age: 15 Year
  Sex: Male
  Weight: 89 kg

DRUGS (10)
  1. PARACETAMOL [Concomitant]
     Active Substance: ACETAMINOPHEN
     Indication: BACK PAIN
     Dosage: 1000 MG, PRN
     Route: 048
     Dates: start: 20180706
  2. RANITIDINE. [Concomitant]
     Active Substance: RANITIDINE
     Indication: PRODUCT USED FOR UNKNOWN INDICATION
     Dosage: 300 MG, QD
     Route: 048
     Dates: start: 20180913
  3. MACROGOL [Concomitant]
     Active Substance: POLYETHYLENE GLYCOLS
     Indication: ASTRINGENT THERAPY
     Dosage: 14 G, QD
     Route: 048
     Dates: start: 20180713
  4. DABRAFENIB [Suspect]
     Active Substance: DABRAFENIB
     Indication: GLIOMA
     Dosage: 300 MG, QD
     Route: 048
     Dates: start: 20180724, end: 20190806
  5. TRAMETINIB [Suspect]
     Active Substance: TRAMETINIB
     Indication: GLIOMA
     Dosage: 2 MG, QD
     Route: 048
     Dates: start: 20180724, end: 20190806
  6. SODIUM VALPROATE [Concomitant]
     Active Substance: VALPROATE SODIUM
     Indication: PRODUCT USED FOR UNKNOWN INDICATION
     Dosage: 600 MG, QD
     Route: 048
     Dates: start: 20170524
  7. LEVOTHYROXINE. [Concomitant]
     Active Substance: LEVOTHYROXINE
     Indication: HYPOPITUITARISM
     Dosage: 75 UG, QD
     Route: 048
     Dates: start: 20190301, end: 20190708
  8. HYDROCORTISONE. [Concomitant]
     Active Substance: HYDROCORTISONE
     Indication: HYPOPITUITARISM
     Dosage: 25 MG, QD
     Route: 048
     Dates: start: 20190521
  9. TRAMETINIB [Suspect]
     Active Substance: TRAMETINIB
     Dosage: 300 MG, QD
     Route: 048
     Dates: start: 20180724, end: 20190806
  10. DESMOPRESSIN [Concomitant]
     Active Substance: DESMOPRESSIN
     Indication: POLYURIA
     Dosage: 60 UG, Q12H
     Route: 048
     Dates: start: 20180717

REACTIONS (1)
  - Depressed level of consciousness [Fatal]

NARRATIVE: CASE EVENT DATE: 20190708
